FAERS Safety Report 8288925 (Version 2)
Quarter: 2016Q1

REPORT INFORMATION
  Report Type: Spontaneous
  Country: US (occurrence: US)
  Receive Date: 20111213
  Receipt Date: 20160310
  Transmission Date: 20160526
  Serious: No
  Sender: FDA-Public Use
  Company Number: US-AMGEN-USASP2011058719

PATIENT
  Age: 49 Year
  Sex: Female

DRUGS (1)
  1. ENBREL [Suspect]
     Active Substance: ETANERCEPT
     Indication: PSORIATIC ARTHROPATHY
     Dosage: 50 MG, QWK
     Route: 065
     Dates: start: 2005

REACTIONS (6)
  - Arthralgia [Not Recovered/Not Resolved]
  - Throat irritation [Unknown]
  - Rhinorrhoea [Unknown]
  - Hypersensitivity [Unknown]
  - Arthropathy [Unknown]
  - Dysphonia [Unknown]

NARRATIVE: CASE EVENT DATE: 20111016
